FAERS Safety Report 17944676 (Version 2)
Quarter: 2020Q2

REPORT INFORMATION
  Report Type: Report from Study
  Country: None (occurrence: PT)
  Receive Date: 20200625
  Receipt Date: 20200629
  Transmission Date: 20200714
  Serious: Yes (Hospitalization, Other)
  Sender: FDA-Public Use
  Company Number: PT-SA-BMS15264575

PATIENT

DRUGS (12)
  1. ACETYLCYSTEINE. [Suspect]
     Active Substance: ACETYLCYSTEINE
     Indication: PRODUCT USED FOR UNKNOWN INDICATION
     Dosage: TEXT:UNKNOWN
  2. AMIODARONE HYDROCHLORIDE. [Suspect]
     Active Substance: AMIODARONE HYDROCHLORIDE
     Dosage: TEXT:UNKNOWN
  3. AMLODIPINE [Suspect]
     Active Substance: AMLODIPINE BESYLATE
     Dosage: UNK UNK,UNK
  4. IRBESARTAN. [Suspect]
     Active Substance: IRBESARTAN
  5. IPRATROPIUM BROMIDE. [Suspect]
     Active Substance: IPRATROPIUM BROMIDE
     Dosage: UNK UNK,UNK
     Route: 055
  6. FUROSEMIDE. [Suspect]
     Active Substance: FUROSEMIDE
     Dosage: TEXT:UNKNOWN
     Route: 065
  7. HYDROCHLOROTHIAZIDE/IRBESARTAN [Suspect]
     Active Substance: HYDROCHLOROTHIAZIDE\IRBESARTAN
     Dosage: UNK UNK,UNK
  8. AMLODIPINE [Suspect]
     Active Substance: AMLODIPINE BESYLATE
     Dosage: TEXT:UNKNOWN
  9. DIAZEPAM. [Suspect]
     Active Substance: DIAZEPAM
     Indication: PRODUCT USED FOR UNKNOWN INDICATION
     Dosage: UNK UNK,UNK
  10. DIAZEPAM. [Suspect]
     Active Substance: DIAZEPAM
     Dosage: TEXT:UNKNOWN
     Route: 065
  11. IPRATROPIUM BROMIDE. [Suspect]
     Active Substance: IPRATROPIUM BROMIDE
     Dosage: TEXT:UNKNOWN
     Route: 055
  12. FUROSEMIDE. [Suspect]
     Active Substance: FUROSEMIDE
     Dosage: TEXT:UNKNOWN
     Route: 065

REACTIONS (4)
  - Oedema peripheral [Recovered/Resolved]
  - Dyspnoea [Recovered/Resolved]
  - Hypoxia [Recovered/Resolved]
  - Rales [Recovered/Resolved]
